FAERS Safety Report 7659191-1 (Version None)
Quarter: 2011Q3

REPORT INFORMATION
  Report Type: 
  Country: None (occurrence: None)
  Receive Date: 20110805
  Receipt Date: 20110803
  Transmission Date: 20111222
  Serious: Yes (Other)
  Sender: FDA-Public Use
  Company Number: JP-PFIZER INC-2011144672

PATIENT
  Age: 71 Year
  Sex: Female
  Weight: 70 kg

DRUGS (12)
  1. CARBOPLATIN [Concomitant]
     Indication: SARCOMA UTERUS
     Dosage: 600 MG
     Route: 041
     Dates: start: 20110302, end: 20110525
  2. TAXOTERE [Concomitant]
     Indication: SARCOMA UTERUS
     Dosage: 120MG
     Route: 041
     Dates: start: 20110302, end: 20110525
  3. PRIMPERAN TAB [Concomitant]
     Dosage: 5 MG, 3X/DAY
     Route: 048
  4. SITAGLIPTIN PHOSPHATE [Concomitant]
     Dosage: 50 MG, 1X/DAY
     Route: 048
  5. ZOFRAN [Concomitant]
     Dosage: 4 MG, 1X/DAY
     Route: 048
     Dates: end: 20110529
  6. LAXOBERON [Concomitant]
     Dosage: UNK
     Route: 048
  7. LYRICA [Suspect]
     Indication: HYPOAESTHESIA
     Dosage: 150 MG/DAY
     Route: 048
     Dates: start: 20110525, end: 20110527
  8. CANDESARTAN CILEXETIL [Concomitant]
     Dosage: 4 MG, 1X/DAY
     Route: 048
  9. TENORMIN [Concomitant]
     Dosage: 25 MG, 1X/DAY
     Route: 048
  10. VEGETAMIN [Concomitant]
     Dosage: UNK
     Route: 048
  11. MAGNESIUM SULFATE [Concomitant]
     Dosage: 500 MG, 3X/DAY
     Route: 048
  12. MECOBALAMIN [Concomitant]
     Dosage: 500 UG, 3X/DAY
     Route: 048

REACTIONS (3)
  - CLAVICLE FRACTURE [None]
  - FALL [None]
  - DIZZINESS [None]
